FAERS Safety Report 9576190 (Version 1)
Quarter: 2013Q4

REPORT INFORMATION
  Report Type: Spontaneous
  Country: US (occurrence: US)
  Receive Date: 20131001
  Receipt Date: 20131001
  Transmission Date: 20140711
  Serious: No
  Sender: FDA-Public Use
  Company Number: US-AMGEN-USASP2013001284

PATIENT
  Sex: Female
  Weight: 53.52 kg

DRUGS (11)
  1. ENBREL [Suspect]
     Indication: RHEUMATOID ARTHRITIS
     Dosage: 50 MG, QWK
     Route: 058
  2. CYMBALTA [Concomitant]
     Dosage: 20 MG, UNK
  3. PROTONIX [Concomitant]
     Dosage: 20 MG, UNK
  4. PLAQUENIL                          /00072602/ [Concomitant]
     Dosage: 200 MG, UNK
  5. TYLENOL W/CODEINE NO. 3 [Concomitant]
     Dosage: UNK
  6. METHOTREXATE [Concomitant]
     Dosage: 2.5 MG, UNK
  7. PROVENTIL                          /00139501/ [Concomitant]
     Dosage: 90 MUG, UNK
  8. NORTRIPTYLIN [Concomitant]
     Dosage: 10 MG, UNK
  9. VITAMIN D                          /00107901/ [Concomitant]
     Dosage: 1000 UNIT, UNK
  10. FOLIC ACID [Concomitant]
     Dosage: UNK
  11. B12                                /00056201/ [Concomitant]
     Dosage: 1 MG, UNK

REACTIONS (1)
  - Injection site erythema [Unknown]
